FAERS Safety Report 11188881 (Version 2)
Quarter: 2015Q3

REPORT INFORMATION
  Report Type: Other
  Country: US (occurrence: US)
  Receive Date: 20150615
  Receipt Date: 20150723
  Transmission Date: 20151125
  Serious: Yes (Hospitalization, Other)
  Sender: FDA-Public Use
  Company Number: US-SHIRE-US201504932

PATIENT
  Sex: Female

DRUGS (1)
  1. VYVANSE [Suspect]
     Active Substance: LISDEXAMFETAMINE DIMESYLATE
     Indication: PRODUCT USED FOR UNKNOWN INDICATION
     Dosage: UNK, UNKNOWN
     Route: 048

REACTIONS (8)
  - Dizziness [Unknown]
  - Mood altered [Unknown]
  - Drug withdrawal syndrome [Unknown]
  - Disorientation [Unknown]
  - Activities of daily living impaired [Unknown]
  - Anger [Unknown]
  - Mania [Unknown]
  - Hospitalisation [Unknown]
